FAERS Safety Report 7891436 (Version 3)
Quarter: 2013Q1

REPORT INFORMATION
  Report Type: Report from Study
  Country: CA (occurrence: CA)
  Receive Date: 20110408
  Receipt Date: 20130123
  Transmission Date: 20140127
  Serious: Yes (Other)
  Sender: FDA-Public Use
  Company Number: CA-SANOFI-AVENTIS-2011SA020760

PATIENT
  Age: 64 Year
  Sex: Male
  Weight: 70.5 kg

DRUGS (32)
  1. DOCETAXEL [Suspect]
     Indication: PROSTATE CANCER
     Route: 041
     Dates: start: 20110224, end: 20110224
  2. DOCETAXEL [Suspect]
     Indication: PROSTATE CANCER
     Route: 041
     Dates: start: 20110224, end: 20110224
  3. INVESTIGATIONAL DRUG [Suspect]
     Indication: PROSTATE CANCER
     Route: 042
     Dates: start: 20110216, end: 20110216
  4. INVESTIGATIONAL DRUG [Suspect]
     Indication: PROSTATE CANCER
     Route: 042
     Dates: start: 20110221, end: 20110221
  5. INVESTIGATIONAL DRUG [Suspect]
     Indication: PROSTATE CANCER
     Route: 042
     Dates: start: 20110224, end: 20110224
  6. PREDNISONE [Suspect]
     Indication: PROSTATE CANCER
     Route: 048
     Dates: start: 20110224
  7. DEXAMETHASONE [Concomitant]
     Indication: PREMEDICATION
     Route: 048
     Dates: start: 20110223, end: 20110225
  8. DEXAMETHASONE [Concomitant]
     Indication: PROPHYLAXIS
     Route: 048
     Dates: start: 20110223, end: 20110225
  9. DIOVOL [Concomitant]
     Indication: NAUSEA
     Dosage: 1 TO 2 TABLETS, AS REQUIRED
     Route: 048
     Dates: start: 201101
  10. FISH OIL [Concomitant]
     Indication: ROUTINE HEALTH MAINTENANCE
     Dosage: 1 IN 1 DAY
     Route: 048
     Dates: start: 201002
  11. GLUTAMIC ACID [Concomitant]
     Route: 048
     Dates: start: 201002
  12. HYDROCHLOROTHIAZIDE [Concomitant]
     Indication: HYPERTENSION
     Route: 048
     Dates: start: 201102, end: 20110309
  13. HYDROCHLOROTHIAZIDE [Concomitant]
     Indication: HYPERTENSION
     Route: 048
  14. GOSERELIN [Concomitant]
     Indication: PROSTATE CANCER
     Route: 065
  15. METOCLOPRAMIDE HYDROCHLORIDE [Concomitant]
     Indication: NAUSEA
     Route: 065
  16. ERGOCALCIFEROL [Concomitant]
     Indication: METASTASES TO BONE
     Dosage: DOSE:2000 UNIT(S)
     Route: 048
     Dates: start: 201002
  17. CALCIUM [Concomitant]
     Indication: PROSTATE CANCER
     Route: 048
     Dates: start: 201002
  18. MAGNESIUM [Concomitant]
     Indication: PROSTATE CANCER
     Route: 048
     Dates: start: 201002
  19. PARACETAMOL [Concomitant]
     Indication: CHEST PAIN
     Dosage: 650 MG EVERY 4 TO 6 HOURS AS NEEDED
     Route: 048
     Dates: start: 20110216, end: 20110223
  20. PARACETAMOL [Concomitant]
     Indication: PROPHYLAXIS
     Dosage: 650 MG EVERY 4 TO 6 HOURS AS NEEDED
     Route: 048
     Dates: start: 20110216, end: 20110223
  21. PARACETAMOL [Concomitant]
     Indication: PREMEDICATION
     Dosage: 650 MG EVERY 4 TO 6 HOURS AS NEEDED
     Route: 048
     Dates: start: 20110216, end: 20110223
  22. PARACETAMOL [Concomitant]
     Indication: CHEST PAIN
     Route: 065
     Dates: start: 20110224
  23. PARACETAMOL [Concomitant]
     Indication: PROPHYLAXIS
     Route: 065
     Dates: start: 20110224
  24. PARACETAMOL [Concomitant]
     Indication: PREMEDICATION
     Route: 065
     Dates: start: 20110224
  25. DIPHENHYDRAMINE HYDROCHLORIDE [Concomitant]
     Indication: RASH
     Dosage: 25 TO 50 MG EVERY 4 HOURS AS NEEDED
     Route: 048
     Dates: start: 20110220, end: 20110223
  26. ZOLEDRONIC ACID [Concomitant]
     Indication: METASTASES TO BONE
     Route: 065
     Dates: start: 20110124
  27. PANTOPRAZOLE [Concomitant]
     Indication: NAUSEA
     Route: 048
     Dates: start: 20110220
  28. PANTOPRAZOLE [Concomitant]
     Indication: DYSPEPSIA
     Route: 048
     Dates: start: 20110220
  29. ESOMEPRAZOLE MAGNESIUM [Concomitant]
     Indication: NAUSEA
     Route: 048
     Dates: start: 20110210, end: 20110219
  30. ESOMEPRAZOLE MAGNESIUM [Concomitant]
     Indication: DYSPEPSIA
     Route: 048
     Dates: start: 20110210, end: 20110219
  31. TADALAFIL [Concomitant]
     Indication: ERECTILE DYSFUNCTION
     Dosage: 25 MG PRN
     Route: 048
     Dates: start: 200704
  32. ALL OTHER THERAPEUTIC PRODUCTS [Concomitant]
     Indication: APHTHOUS STOMATITIS
     Route: 065
     Dates: start: 2007

REACTIONS (1)
  - Cerebral ischaemia [Recovered/Resolved]
